FAERS Safety Report 6495825-5 (Version None)
Quarter: 2009Q4

REPORT INFORMATION
  Report Type: 
  Country: None (occurrence: None)
  Receive Date: 20091214
  Receipt Date: 20090815
  Transmission Date: 20100525
  Serious: No
  Sender: FDA-Public Use
  Company Number: US-BRISTOL-MYERS SQUIBB COMPANY-14745012

PATIENT
  Sex: Female

DRUGS (3)
  1. ABILIFY [Interacting]
  2. TEGRETOL [Interacting]
     Dosage: 300 MG
  3. LEXAPRO [Suspect]

REACTIONS (3)
  - BIPOLAR DISORDER [None]
  - DRUG INEFFECTIVE [None]
  - DRUG INTERACTION [None]
